FAERS Safety Report 18306372 (Version 2)
Quarter: 2020Q4

REPORT INFORMATION
  Report Type: Other
  Country: CA (occurrence: CA)
  Receive Date: 20200924
  Receipt Date: 20201006
  Transmission Date: 20210113
  Serious: Yes (Other)
  Sender: FDA-Public Use
  Company Number: CA-CELLTRION INC.-2020CA026070

PATIENT

DRUGS (11)
  1. SYMBICORT [Concomitant]
     Active Substance: BUDESONIDE\FORMOTEROL FUMARATE DIHYDRATE
  2. SALBUTAMOL [Concomitant]
     Active Substance: ALBUTEROL
  3. FOLIC ACID. [Concomitant]
     Active Substance: FOLIC ACID
  4. HYDROXYCHLOROQUINE [Concomitant]
     Active Substance: HYDROXYCHLOROQUINE
  5. TAMSULOSIN [Concomitant]
     Active Substance: TAMSULOSIN
  6. RITUXIMAB (UNKNOWN) [Suspect]
     Active Substance: RITUXIMAB
     Dosage: UNK
     Route: 042
  7. CALCIUM [Concomitant]
     Active Substance: CALCIUM
  8. RITUXIMAB (UNKNOWN) [Suspect]
     Active Substance: RITUXIMAB
     Indication: RHEUMATOID ARTHRITIS
     Dosage: 1000 MG
     Route: 042
  9. LEFLUNOMIDE. [Concomitant]
     Active Substance: LEFLUNOMIDE
  10. OXYNEO [Concomitant]
     Active Substance: OXYCODONE
  11. ATORVASTATIN [Concomitant]
     Active Substance: ATORVASTATIN

REACTIONS (16)
  - Heart rate decreased [Unknown]
  - Thyroidectomy [Unknown]
  - Blood pressure diastolic abnormal [Unknown]
  - Pericarditis [Unknown]
  - Thyroid cancer [Unknown]
  - Thyroid disorder [Unknown]
  - Weight increased [Unknown]
  - Blood pressure decreased [Unknown]
  - Blood pressure systolic increased [Unknown]
  - Feeling abnormal [Unknown]
  - Atrial fibrillation [Unknown]
  - Heart rate increased [Unknown]
  - Prostatomegaly [Unknown]
  - Respiratory rate increased [Unknown]
  - Blood pressure systolic abnormal [Unknown]
  - Pruritus [Unknown]
